FAERS Safety Report 6728390-5 (Version None)
Quarter: 2010Q2

REPORT INFORMATION
  Report Type: 
  Country: None (occurrence: None)
  Receive Date: 20100517
  Receipt Date: 20100504
  Transmission Date: 20101027
  Serious: Yes (Hospitalization)
  Sender: FDA-Public Use
  Company Number: GB-MEDIMMUNE-MEDI-0011186

PATIENT
  Sex: Female
  Weight: 7.6 kg

DRUGS (1)
  1. SYNAGIS [Suspect]
     Route: 030
     Dates: start: 20091209, end: 20091209

REACTIONS (5)
  - COUGH [None]
  - HOSPITALISATION [None]
  - NASOPHARYNGITIS [None]
  - RESPIRATORY DISORDER [None]
  - RESPIRATORY SYNCYTIAL VIRUS INFECTION [None]
